FAERS Safety Report 9910714 (Version 1)
Quarter: 2014Q1

REPORT INFORMATION
  Report Type: Spontaneous
  Country: TR (occurrence: TR)
  Receive Date: 20140219
  Receipt Date: 20140219
  Transmission Date: 20141002
  Serious: Yes (Other)
  Sender: FDA-Public Use
  Company Number: TR-SA-2014SA015943

PATIENT
  Age: 53 Year
  Sex: Female

DRUGS (3)
  1. ARAVA [Suspect]
     Indication: PRODUCT USED FOR UNKNOWN INDICATION
     Route: 065
  2. ETANERCEPT [Suspect]
     Indication: RHEUMATOID ARTHRITIS
     Route: 058
     Dates: start: 20110922, end: 201206
  3. PREDNOL [Concomitant]

REACTIONS (7)
  - Abasia [Not Recovered/Not Resolved]
  - Lung cyst [Recovered/Resolved]
  - Rheumatoid arthritis [Not Recovered/Not Resolved]
  - Synovial cyst [Not Recovered/Not Resolved]
  - Influenza [Recovered/Resolved]
  - Blood insulin increased [Not Recovered/Not Resolved]
  - Arthropathy [Recovering/Resolving]
